FAERS Safety Report 8486230-0 (Version None)
Quarter: 2012Q3

REPORT INFORMATION
  Report Type: 
  Country: None (occurrence: None)
  Receive Date: 20120703
  Receipt Date: 20120626
  Transmission Date: 20120928
  Serious: Yes (Hospitalization)
  Sender: FDA-Public Use
  Company Number: US-ELI_LILLY_AND_COMPANY-US201206009024

PATIENT
  Sex: Male
  Weight: 94.331 kg

DRUGS (3)
  1. EFFIENT [Suspect]
     Dosage: 10 MG, QD
  2. TOPROL-XL [Concomitant]
  3. SIMVASTATIN [Concomitant]

REACTIONS (1)
  - STENT PLACEMENT [None]
